FAERS Safety Report 7298137-5 (Version None)
Quarter: 2011Q1

REPORT INFORMATION
  Report Type: 
  Country: None (occurrence: None)
  Receive Date: 20110207
  Receipt Date: 20110126
  Transmission Date: 20110831
  Serious: Yes (Death, Hospitalization)
  Sender: FDA-Public Use
  Company Number: IDA-00489

PATIENT
  Age: 21 Year
  Sex: Male

DRUGS (2)
  1. PROPRANOLOL [Suspect]
     Dosage: 10 DF ONCE
     Route: 048
  2. DILTIAZEM [Suspect]
     Dosage: 25 DF ONCE
     Route: 048

REACTIONS (9)
  - BLOOD PRESSURE IMMEASURABLE [None]
  - PUPIL FIXED [None]
  - SELF-MEDICATION [None]
  - HEART RATE DECREASED [None]
  - CARDIAC FAILURE ACUTE [None]
  - CARDIAC ARREST [None]
  - DEPRESSED LEVEL OF CONSCIOUSNESS [None]
  - MULTIPLE DRUG OVERDOSE INTENTIONAL [None]
  - SUICIDE ATTEMPT [None]
